FAERS Safety Report 18920503 (Version 1)
Quarter: 2021Q1

REPORT INFORMATION
  Report Type: Report from Study
  Country: US (occurrence: US)
  Receive Date: 20210222
  Receipt Date: 20210222
  Transmission Date: 20210420
  Serious: No
  Sender: FDA-Public Use
  Company Number: NVSC2021US033541

PATIENT
  Sex: Male

DRUGS (3)
  1. COSENTYX [Suspect]
     Active Substance: SECUKINUMAB
     Indication: PSORIASIS
     Dosage: 300 MG, ONCE WEEKLY FOR 5 WEEKS, THEN ONCE EVERY 4 WEEKS
     Route: 058
     Dates: start: 20200622
  2. COSENTYX [Suspect]
     Active Substance: SECUKINUMAB
     Dosage: UNK
     Route: 065
     Dates: start: 20200629
  3. COSENTYX [Suspect]
     Active Substance: SECUKINUMAB
     Dosage: UNK
     Route: 065
     Dates: start: 20200721

REACTIONS (4)
  - Product dispensing error [Unknown]
  - Inappropriate schedule of product administration [Unknown]
  - Drug dispensed to wrong patient [Unknown]
  - Memory impairment [Unknown]
